FAERS Safety Report 18364746 (Version 2)
Quarter: 2022Q3

REPORT INFORMATION
  Report Type: Spontaneous
  Country: JP (occurrence: JP)
  Receive Date: 20201009
  Receipt Date: 20220928
  Transmission Date: 20221027
  Serious: Yes (Hospitalization)
  Sender: FDA-Public Use
  Company Number: JP-EISAI-202005463_HAL_P_1

PATIENT
  Age: 58 Year
  Sex: Female

DRUGS (1)
  1. ERIBULIN [Suspect]
     Active Substance: ERIBULIN
     Indication: Squamous cell breast carcinoma
     Dosage: DOSE UNKNOWN
     Route: 041

REACTIONS (2)
  - Hypercalcaemia [Unknown]
  - Febrile neutropenia [Unknown]
